FAERS Safety Report 8048073-1 (Version None)
Quarter: 2012Q1

REPORT INFORMATION
  Report Type: 
  Country: None (occurrence: None)
  Receive Date: 20120117
  Receipt Date: 20120112
  Transmission Date: 20120608
  Serious: Yes (Hospitalization, Other)
  Sender: FDA-Public Use
  Company Number: GB-SP-2011-08478

PATIENT
  Sex: Male

DRUGS (1)
  1. IMMUCYST [Suspect]
     Indication: PRODUCT USED FOR UNKNOWN INDICATION
     Route: 043
     Dates: start: 20110713, end: 20110817

REACTIONS (8)
  - URINARY TRACT INFECTION [None]
  - MALAISE [None]
  - BOVINE TUBERCULOSIS [None]
  - MICTURITION URGENCY [None]
  - CHILLS [None]
  - POLLAKIURIA [None]
  - INFLUENZA LIKE ILLNESS [None]
  - PYREXIA [None]
